FAERS Safety Report 9463004 (Version 1)
Quarter: 2013Q3

REPORT INFORMATION
  Report Type: Spontaneous
  Country: GB (occurrence: GB)
  Receive Date: 20130816
  Receipt Date: 20130816
  Transmission Date: 20140515
  Serious: Yes (Death, Other)
  Sender: FDA-Public Use
  Company Number: PHHY2013GB088208

PATIENT
  Age: 54 Year
  Sex: Male

DRUGS (13)
  1. RIFAMPICIN [Suspect]
     Indication: PULMONARY TUBERCULOSIS
  2. ISONIAZID [Interacting]
     Indication: PULMONARY TUBERCULOSIS
  3. PYRAZINAMIDE [Interacting]
     Indication: PULMONARY TUBERCULOSIS
  4. ETHAMBUTOL [Interacting]
     Indication: PULMONARY TUBERCULOSIS
  5. AMIKACIN [Suspect]
     Indication: PULMONARY TUBERCULOSIS
  6. MOXIFLOXACIN [Interacting]
     Indication: PULMONARY TUBERCULOSIS
  7. PROTHIONAMIDE [Interacting]
     Indication: PULMONARY TUBERCULOSIS
  8. PARA-AMINOSALICYLIC ACID [Interacting]
     Indication: PULMONARY TUBERCULOSIS
  9. CYCLOSERINE [Interacting]
     Indication: PULMONARY TUBERCULOSIS
  10. LINEZOLID [Interacting]
     Indication: PULMONARY TUBERCULOSIS
  11. ATRIPLA [Interacting]
     Indication: HIV INFECTION
  12. KIVEXA [Interacting]
     Indication: HIV INFECTION
  13. DEXAMETHASONE [Concomitant]

REACTIONS (17)
  - Cerebral infarction [Fatal]
  - Hemiparesis [Fatal]
  - Mobility decreased [Fatal]
  - Vomiting [Fatal]
  - Somnolence [Fatal]
  - Headache [Fatal]
  - General physical health deterioration [Fatal]
  - Nausea [Fatal]
  - Meningitis aseptic [Unknown]
  - Deafness neurosensory [Unknown]
  - Drug resistance [Unknown]
  - Toxicity to various agents [Unknown]
  - Drug interaction [Unknown]
  - Renal impairment [Unknown]
  - Rash [Unknown]
  - Neutropenia [Unknown]
  - Neuropathy peripheral [Unknown]
